FAERS Safety Report 7445122-6 (Version None)
Quarter: 2011Q2

REPORT INFORMATION
  Report Type: 
  Country: None (occurrence: None)
  Receive Date: 20110429
  Receipt Date: 20110427
  Transmission Date: 20111010
  Serious: Yes (Other)
  Sender: FDA-Public Use
  Company Number: DE-SANOFI-AVENTIS-2011SA016475

PATIENT
  Age: 73 Year
  Sex: Female
  Weight: 57 kg

DRUGS (7)
  1. HYDROCHLOROTHIAZIDE [Concomitant]
     Route: 065
  2. MARCUMAR [Concomitant]
     Indication: ATRIAL FIBRILLATION
     Route: 065
  3. ATACAND [Concomitant]
     Route: 065
  4. MULTAQ [Suspect]
     Indication: ATRIAL FIBRILLATION
     Route: 048
     Dates: start: 20101201, end: 20110404
  5. SIMVASTATIN [Concomitant]
     Route: 065
  6. METOPROLOL [Concomitant]
     Indication: ATRIAL FIBRILLATION
     Route: 065
  7. CONCOR [Concomitant]
     Route: 065

REACTIONS (5)
  - LUNG DISORDER [None]
  - DYSPNOEA [None]
  - PULMONARY FIBROSIS [None]
  - PULMONARY HYPERTENSION [None]
  - INTERSTITIAL LUNG DISEASE [None]
